FAERS Safety Report 5350424-3 (Version None)
Quarter: 2007Q2

REPORT INFORMATION
  Report Type: 
  Country: None (occurrence: None)
  Receive Date: 20070605
  Receipt Date: 20070605
  Transmission Date: 20071010
  Serious: Yes (Other)
  Sender: FDA-Public Use
  Company Number: None

PATIENT
  Age: 29 Year
  Sex: Female
  Weight: 100.6985 kg

DRUGS (1)
  1. GLYBURIDE [Suspect]
     Indication: DIABETES MELLITUS
     Dosage: 1 TABLET 2 A DAY PO; 1/2 TABLET 1 A DAY PO
     Route: 048
     Dates: start: 20070603, end: 20070603

REACTIONS (1)
  - HAEMORRHAGE [None]
